FAERS Safety Report 7778424 (Version 3)
Quarter: 2013Q3

REPORT INFORMATION
  Report Type: Report from Study
  Country: GB (occurrence: GB)
  Receive Date: 20110128
  Receipt Date: 20130810
  Transmission Date: 20140515
  Serious: Yes (Death)
  Sender: FDA-Public Use
  Company Number: GB-ROCHE-755500

PATIENT
  Sex: Male
  Weight: 81 kg

DRUGS (31)
  1. OSELTAMIVIR [Suspect]
     Indication: PROPHYLAXIS
     Route: 042
  2. OSELTAMIVIR [Suspect]
     Dosage: DOSE REDUCED AFTER HAVING RECEIVED 3 DOSES TO 40 MG OD.
     Route: 042
  3. BASILIXIMAB [Concomitant]
     Dosage: FREQUENCY: OD.ONLY HAD TWO DOSES THOUGH
     Route: 042
     Dates: start: 20101231, end: 20110102
  4. MYCOPHENOLATE MOFETIL [Concomitant]
     Dosage: DOSE DECREASED TO 500 MG BID FROM 04 JAN 2011.
     Route: 042
     Dates: start: 20101231, end: 20110110
  5. FUNGIZONE [Concomitant]
     Route: 050
     Dates: start: 20101231, end: 20110110
  6. GENTAMICIN [Concomitant]
     Dosage: FREQUENCY: OD.
     Route: 042
     Dates: start: 20110104, end: 20110110
  7. HYDROCORTISONE [Concomitant]
     Route: 042
     Dates: start: 20110107, end: 20110110
  8. METOCLOPRAMIDE [Concomitant]
     Route: 042
     Dates: start: 20110104, end: 20110110
  9. METRONIDAZOLE [Concomitant]
     Route: 042
     Dates: start: 20110107, end: 20110110
  10. NYSTATIN [Concomitant]
     Route: 050
     Dates: start: 20101231, end: 20110110
  11. SILDENAFIL [Concomitant]
     Route: 050
     Dates: start: 20110105, end: 20110110
  12. SENNA [Concomitant]
     Dosage: FREQUENCY: NOCTE.
     Route: 050
     Dates: start: 20110105, end: 20110110
  13. CASPOFUNGIN [Concomitant]
     Dosage: FREQUENCY: OD.
     Route: 042
     Dates: start: 20110104, end: 20110110
  14. CEFTAZIDIME [Concomitant]
     Route: 042
     Dates: start: 20110109, end: 20110110
  15. COLOMYCIN (COLISTIN) [Concomitant]
     Dosage: DOSE: 1 MU.
     Route: 042
     Dates: start: 20110107, end: 20110110
  16. CO-TRIMOXAZOLE [Concomitant]
     Dosage: FREQUENCY: OD.
     Route: 042
     Dates: start: 20110104, end: 20110110
  17. DOCUSATE [Concomitant]
     Route: 050
     Dates: start: 20110105, end: 20110110
  18. FERROUS FUMARATE [Concomitant]
     Route: 050
     Dates: start: 20110101, end: 20110110
  19. TIGECYCLINE [Concomitant]
     Route: 042
     Dates: start: 20110110, end: 20110110
  20. MILRINONE [Concomitant]
     Dosage: DOSE: 0.05-0.7 MCG/KG/MIN. FREQUENCY: CONTINUOUS
     Route: 042
     Dates: start: 20110101, end: 20110106
  21. ADRENALINE [Concomitant]
     Dosage: DOSE: 0.01- 0.1MCG/KG/MIN. FREQUENCY: CONTINUOUS.
     Route: 042
     Dates: start: 20110101, end: 20110110
  22. PROSTACYCLIN [Concomitant]
     Dosage: DOSE: 5NG/KG/MIN. FREQUENCY: CONTINUOUS
     Route: 042
     Dates: start: 20110108, end: 20110110
  23. INSULIN [Concomitant]
     Dosage: DOSE: 0.5- 20U/HR. FREQUENCY: CONTINUOUS.
     Route: 042
     Dates: start: 20110101, end: 20110110
  24. NORADRENALINE [Concomitant]
     Dosage: DOSE: 0.4 MG/KG/MIN. FREQUENCY: CONTINUOUS.
     Route: 042
     Dates: start: 20110109, end: 20110110
  25. OMEPRAZOLE [Concomitant]
     Dosage: DOSE: 8 MG/HR. FREQUENCY: CONTINUOUS.
     Route: 042
     Dates: start: 20110109, end: 20110110
  26. REMIFENTANIL [Concomitant]
     Dosage: DOSE: 0.06MCG/KG/MIN. FREQUENCY: CONTINUOUS.
     Route: 042
     Dates: start: 20110101, end: 20110110
  27. VASOPRESSIN [Concomitant]
     Dosage: DOSE: 0.03U/MIN. FREQUENCY: CONTINUOUS.
     Route: 042
     Dates: start: 20110106, end: 20110110
  28. METHYLENE BLUE [Concomitant]
     Dosage: DOSE: 80 MG/HR. FREQUENCY: CONTINUOUS.
     Route: 042
     Dates: start: 20110109, end: 20110110
  29. SODIUM BICARBONATE 8.4% [Concomitant]
     Dosage: DOSE: 50 ML/HR. FREQUENCY: CONTINUOUS.
     Route: 042
     Dates: start: 20110107, end: 20110110
  30. METHYLPREDNISOLONE [Concomitant]
     Route: 042
     Dates: start: 20101231, end: 20110110
  31. CICLOSPORIN [Concomitant]
     Dosage: DOSE: VARIABLE
     Route: 042
     Dates: start: 20110102, end: 20110110

REACTIONS (2)
  - Multi-organ failure [Fatal]
  - Device related infection [Fatal]
